FAERS Safety Report 9614316 (Version 2)
Quarter: 2013Q4

REPORT INFORMATION
  Report Type: Spontaneous
  Country: US (occurrence: US)
  Receive Date: 20131011
  Receipt Date: 20131018
  Transmission Date: 20140711
  Serious: No
  Sender: FDA-Public Use
  Company Number: US-009507513-1310USA003872

PATIENT
  Age: 59 Year
  Sex: Female

DRUGS (2)
  1. SAPHRIS [Suspect]
     Indication: BIPOLAR DISORDER
     Dosage: 1 TABLET AT NIGHT, RAPID DISSOLVE 10
     Route: 048
     Dates: start: 201202
  2. KLONOPIN [Concomitant]
     Dosage: USED AS NEEDED

REACTIONS (5)
  - Nervousness [Not Recovered/Not Resolved]
  - Mania [Not Recovered/Not Resolved]
  - Drug dose omission [Unknown]
  - Product blister packaging issue [Unknown]
  - Inappropriate schedule of drug administration [Unknown]
